FAERS Safety Report 21052415 (Version 1)
Quarter: 2022Q3

REPORT INFORMATION
  Report Type: Spontaneous
  Country: US (occurrence: None)
  Receive Date: 20220706
  Receipt Date: 20220706
  Transmission Date: 20221027
  Serious: Yes (Life-Threatening)
  Sender: FDA-Public Use
  Company Number: None

PATIENT
  Age: 20 Year
  Sex: Male
  Weight: 89.55 kg

DRUGS (1)
  1. OXYCODONE HYDROCHLORIDE [Suspect]
     Active Substance: OXYCODONE HYDROCHLORIDE
     Indication: Pain
     Dosage: FREQUENCY : EVERY 4 HOURS;?QUANTITY: 40 TABLETS?
     Route: 048
     Dates: start: 20220701, end: 20220704

REACTIONS (13)
  - Somnolence [None]
  - Hypersomnia [None]
  - Speech disorder [None]
  - Muscle spasms [None]
  - Dyspnoea [None]
  - Dyspnoea [None]
  - Dizziness [None]
  - Confusional state [None]
  - Nausea [None]
  - Respiratory rate decreased [None]
  - Pain [None]
  - Dysphemia [None]
  - Feeling abnormal [None]

NARRATIVE: CASE EVENT DATE: 20220703
